FAERS Safety Report 8564825-3 (Version None)
Quarter: 2012Q3

REPORT INFORMATION
  Report Type: 
  Country: None (occurrence: None)
  Receive Date: 20120803
  Receipt Date: 20120726
  Transmission Date: 20120928
  Serious: Yes (Other)
  Sender: FDA-Public Use
  Company Number: US-ELI_LILLY_AND_COMPANY-US201104003410

PATIENT
  Sex: Female

DRUGS (8)
  1. IRBESARTAN [Concomitant]
     Dosage: 300 MG, QD
  2. FORTEO [Suspect]
     Indication: OSTEOPOROSIS
     Dosage: 20 UG, QD
  3. CALCIUM [Concomitant]
     Dosage: UNK
  4. HYDROCHLOROTHIAZDE TAB [Concomitant]
     Dosage: 25 MG, QD
  5. VITAMIN TAB [Concomitant]
  6. FORTEO [Suspect]
     Dosage: 20 UG, QD
  7. RALOXIFENE HYDROCHLORIDE [Suspect]
     Indication: OSTEOPOROSIS
     Dosage: 60 MG, QD
     Dates: start: 20040101
  8. FORTEO [Suspect]
     Dosage: 20 UG, QD

REACTIONS (2)
  - DRUG DOSE OMISSION [None]
  - BASAL CELL CARCINOMA [None]
